FAERS Safety Report 24743369 (Version 1)
Quarter: 2024Q4

REPORT INFORMATION
  Report Type: Spontaneous
  Country: CA (occurrence: CA)
  Receive Date: 20241217
  Receipt Date: 20241217
  Transmission Date: 20250115
  Serious: Yes (Other)
  Sender: PFIZER
  Company Number: CA-PFIZER INC-202400313147

PATIENT
  Age: 56 Year
  Sex: Female

DRUGS (1)
  1. RUXIENCE [Suspect]
     Active Substance: RITUXIMAB-PVVR
     Indication: Granulomatosis with polyangiitis
     Dosage: (MAINTENANCE)
     Route: 042
     Dates: start: 2015

REACTIONS (4)
  - Laryngeal stenosis [Unknown]
  - Condition aggravated [Unknown]
  - Condition aggravated [Unknown]
  - Off label use [Unknown]
